FAERS Safety Report 8321442-8 (Version None)
Quarter: 2012Q2

REPORT INFORMATION
  Report Type: 
  Country: None (occurrence: None)
  Receive Date: 20120430
  Receipt Date: 20090928
  Transmission Date: 20120825
  Serious: No
  Sender: FDA-Public Use
  Company Number: US-TEVA-2009010858

PATIENT
  Sex: Female
  Weight: 90.346 kg

DRUGS (6)
  1. GLYBURIDE AND METFORMIN HYDROCHLORIDE [Concomitant]
     Dates: start: 20070101
  2. ASPIRIN [Concomitant]
     Dates: start: 20070101
  3. EFFEXOR XR [Concomitant]
     Dates: start: 20090101
  4. BENAZEPRIL HYDROCHLORIDE [Concomitant]
     Dates: start: 20050101
  5. JANUMET [Concomitant]
     Dates: start: 20070101
  6. NUVIGIL [Suspect]
     Indication: NARCOLEPSY
     Dosage: 150 MILLIGRAM;
     Route: 048

REACTIONS (1)
  - DRUG INEFFECTIVE [None]
